FAERS Safety Report 11858849 (Version 2)
Quarter: 2016Q1

REPORT INFORMATION
  Report Type: Spontaneous
  Country: JP (occurrence: JP)
  Receive Date: 20151222
  Receipt Date: 20160112
  Transmission Date: 20160526
  Serious: Yes (Hospitalization, Disabling)
  Sender: FDA-Public Use
  Company Number: JP-ROCHE-1681967

PATIENT
  Age: 49 Year
  Sex: Female
  Weight: 52 kg

DRUGS (9)
  1. CELLCEPT [Suspect]
     Active Substance: MYCOPHENOLATE MOFETIL\MYCOPHENOLATE MOFETIL HYDROCHLORIDE
     Indication: LUPUS NEPHRITIS
     Dosage: DOSAGE IS UNCERTAIN.
     Route: 048
     Dates: start: 20151111, end: 20151113
  2. PRAVASTATIN SODIUM. [Concomitant]
     Active Substance: PRAVASTATIN SODIUM
     Indication: LIPIDS ABNORMAL
     Route: 048
  3. EDIROL [Concomitant]
     Active Substance: ELDECALCITOL
     Indication: PROPHYLAXIS
     Route: 048
  4. LIMAPROST ALFADEX [Concomitant]
     Active Substance: LIMAPROST
     Indication: PERIPHERAL VASCULAR DISORDER
     Route: 048
  5. PERSANTIN [Concomitant]
     Active Substance: DIPYRIDAMOLE
     Indication: LUPUS NEPHRITIS
     Route: 048
  6. PREDNISOLONE. [Concomitant]
     Active Substance: PREDNISOLONE
     Indication: LUPUS NEPHRITIS
     Route: 048
     Dates: start: 20151103
  7. LANSOPRAZOLE. [Concomitant]
     Active Substance: LANSOPRAZOLE
     Indication: PROPHYLAXIS
     Route: 048
  8. MICARDIS [Concomitant]
     Active Substance: TELMISARTAN
     Indication: HYPERTENSION
     Route: 048
  9. FERROUS CITRATE [Concomitant]
     Active Substance: FERROUS CITRATE
     Route: 048

REACTIONS (2)
  - Off label use [Unknown]
  - Subarachnoid haemorrhage [Recovered/Resolved with Sequelae]

NARRATIVE: CASE EVENT DATE: 20151113
